FAERS Safety Report 5081239-1 (Version None)
Quarter: 2006Q3

REPORT INFORMATION
  Report Type: 
  Country: None (occurrence: None)
  Receive Date: 20060816
  Receipt Date: 20060807
  Transmission Date: 20061208
  Serious: Yes (Hospitalization, Other)
  Sender: FDA-Public Use
  Company Number: US-AMGEN-US189360

PATIENT
  Sex: Female

DRUGS (3)
  1. ENBREL [Suspect]
     Indication: RHEUMATOID ARTHRITIS
     Route: 058
     Dates: start: 20000601
  2. HUMIRA [Concomitant]
  3. ARAVA [Concomitant]

REACTIONS (3)
  - CONVULSION [None]
  - INTRACRANIAL ANEURYSM [None]
  - THERAPEUTIC RESPONSE DECREASED [None]
